FAERS Safety Report 5138688-2 (Version None)
Quarter: 2006Q4

REPORT INFORMATION
  Report Type: 
  Country: None (occurrence: None)
  Receive Date: 20061030
  Receipt Date: 20060823
  Transmission Date: 20070319
  Serious: Yes (Other)
  Sender: FDA-Public Use
  Company Number: FR-ROCHE-460641

PATIENT
  Age: 44 Year
  Sex: Male

DRUGS (12)
  1. DACLIZUMAB [Suspect]
     Route: 042
     Dates: start: 20060109, end: 20060109
  2. DACLIZUMAB [Suspect]
     Route: 042
     Dates: start: 20060116, end: 20060116
  3. MYCOPHENOLATE MOFETIL [Suspect]
     Route: 042
     Dates: start: 20060109, end: 20060109
  4. MYCOPHENOLATE MOFETIL [Suspect]
     Route: 042
     Dates: start: 20060110, end: 20060113
  5. MYCOPHENOLATE MOFETIL [Suspect]
     Route: 042
     Dates: start: 20060114, end: 20060114
  6. MYCOPHENOLATE MOFETIL [Suspect]
     Route: 048
     Dates: start: 20060114, end: 20060114
  7. MYCOPHENOLATE MOFETIL [Suspect]
     Route: 048
     Dates: start: 20060115
  8. TACROLIMUS [Suspect]
     Route: 048
     Dates: start: 20060115, end: 20060115
  9. METHYLPREDNISOLONE 4MG TAB [Suspect]
     Route: 065
     Dates: start: 20060109
  10. PIPERILLINE [Concomitant]
     Indication: PROPHYLAXIS
     Dates: start: 20060109
  11. ZOVIRAX [Concomitant]
     Dates: start: 20060109
  12. HEPARIN [Concomitant]
     Indication: THROMBOSIS PROPHYLAXIS
     Dates: start: 20060109

REACTIONS (5)
  - ASTHENIA [None]
  - GINGIVITIS [None]
  - HERPES VIRUS INFECTION [None]
  - KAPOSI'S SARCOMA [None]
  - WEIGHT DECREASED [None]
